FAERS Safety Report 4450217-5 (Version None)
Quarter: 2004Q3

REPORT INFORMATION
  Report Type: 
  Country: None (occurrence: None)
  Receive Date: 20040914
  Receipt Date: 20040830
  Transmission Date: 20050211
  Serious: Yes (Other)
  Sender: FDA-Public Use
  Company Number: 203191

PATIENT
  Age: 52 Year
  Sex: Female
  Weight: 46.7205 kg

DRUGS (4)
  1. AVONEX [Suspect]
     Indication: MULTIPLE SCLEROSIS
     Dosage: 30 MCG QW IM
     Route: 030
     Dates: start: 19960101, end: 20040101
  2. AVONEX [Suspect]
     Indication: MULTIPLE SCLEROSIS
     Dosage: 30 MCG QW IM
     Route: 030
     Dates: start: 20040101
  3. ZOLOFT [Concomitant]
  4. CLONAZEPAM [Concomitant]

REACTIONS (4)
  - BLINDNESS TRANSIENT [None]
  - HAEMORRHAGE [None]
  - RECTAL CANCER [None]
  - SQUAMOUS CELL CARCINOMA [None]
